FAERS Safety Report 7049583-6 (Version None)
Quarter: 2010Q4

REPORT INFORMATION
  Report Type: 
  Country: None (occurrence: None)
  Receive Date: 20101018
  Receipt Date: 20101011
  Transmission Date: 20110411
  Serious: Yes (Hospitalization)
  Sender: FDA-Public Use
  Company Number: US-BAYER-201021567BCC

PATIENT
  Age: 6 Year
  Sex: Female
  Weight: 26 kg

DRUGS (4)
  1. RID MOUSSE [Suspect]
     Indication: PRODUCT USED FOR UNKNOWN INDICATION
     Route: 061
     Dates: start: 20101002, end: 20101004
  2. CLARITIN [Concomitant]
     Route: 065
  3. BENADRYL [Concomitant]
     Route: 065
  4. FAIRY TAILS ORGANIC HAIR TREATMENT [Concomitant]
     Route: 061
     Dates: start: 20101006

REACTIONS (1)
  - TREMOR [None]
